FAERS Safety Report 22964780 (Version 2)
Quarter: 2023Q4

REPORT INFORMATION
  Report Type: Spontaneous
  Country: US (occurrence: US)
  Receive Date: 20230921
  Receipt Date: 20231003
  Transmission Date: 20240110
  Serious: No
  Sender: FDA-Public Use
  Company Number: US-ABBVIE-5416188

PATIENT
  Age: 76 Year
  Sex: Female
  Weight: 73 kg

DRUGS (18)
  1. OZURDEX [Suspect]
     Active Substance: DEXAMETHASONE
     Indication: Product used for unknown indication
     Dosage: TIME INTERVAL: AS NECESSARY
     Route: 031
     Dates: start: 20230717
  2. OZURDEX [Suspect]
     Active Substance: DEXAMETHASONE
     Dosage: TIME INTERVAL: AS NECESSARY
     Route: 031
  3. SUCRALFATE [Concomitant]
     Active Substance: SUCRALFATE
     Indication: Product used for unknown indication
  4. ALBUTEROL [Concomitant]
     Active Substance: ALBUTEROL
     Indication: Asthma
  5. REFRESH TEARS [Concomitant]
     Active Substance: CARBOXYMETHYLCELLULOSE SODIUM
     Indication: Product used for unknown indication
  6. TYLENOL ARTHRITIS PAIN [Concomitant]
     Active Substance: ACETAMINOPHEN
     Indication: Product used for unknown indication
  7. XARELTO [Concomitant]
     Active Substance: RIVAROXABAN
     Indication: Cardiac disorder
  8. TRELEGY ELLIPTA [Concomitant]
     Active Substance: FLUTICASONE FUROATE\UMECLIDINIUM BROMIDE\VILANTEROL TRIFENATATE
     Indication: Product used for unknown indication
  9. ECOTRIN [Concomitant]
     Active Substance: ASPIRIN
     Indication: Product used for unknown indication
  10. FOLIC ACID [Concomitant]
     Active Substance: FOLIC ACID
     Indication: Product used for unknown indication
  11. NIFEDIPINE [Concomitant]
     Active Substance: NIFEDIPINE
     Indication: Cardiac disorder
  12. METFORMIN [Concomitant]
     Active Substance: METFORMIN HYDROCHLORIDE
     Indication: Diabetes mellitus
  13. CALCIUM\VITAMIN D [Concomitant]
     Active Substance: CALCIUM\VITAMIN D
     Indication: Product used for unknown indication
  14. LEVOTHYROXINE [Concomitant]
     Active Substance: LEVOTHYROXINE
     Indication: Product used for unknown indication
  15. HUMALOG [Concomitant]
     Active Substance: INSULIN LISPRO
     Indication: Diabetes mellitus
  16. FISH OIL [Concomitant]
     Active Substance: FISH OIL
     Indication: Product used for unknown indication
  17. LOSARTAN [Concomitant]
     Active Substance: LOSARTAN
     Indication: Cardiac disorder
  18. MECLIZINE [Suspect]
     Active Substance: MECLIZINE HYDROCHLORIDE
     Indication: Motion sickness
     Route: 065

REACTIONS (16)
  - Hyperhidrosis [Unknown]
  - Head discomfort [Recovered/Resolved]
  - Tremor [Recovered/Resolved]
  - Stress [Recovered/Resolved]
  - Musculoskeletal stiffness [Recovering/Resolving]
  - Muscular weakness [Recovering/Resolving]
  - Somnolence [Unknown]
  - Dizziness [Recovered/Resolved]
  - Vision blurred [Recovered/Resolved]
  - Palpitations [Recovering/Resolving]
  - Eye disorder [Not Recovered/Not Resolved]
  - Eye swelling [Recovering/Resolving]
  - Hypertension [Recovered/Resolved]
  - Ocular discomfort [Not Recovered/Not Resolved]
  - Musculoskeletal disorder [Not Recovered/Not Resolved]
  - Blood glucose increased [Recovered/Resolved]

NARRATIVE: CASE EVENT DATE: 20230701
